FAERS Safety Report 24061831 (Version 4)
Quarter: 2025Q2

REPORT INFORMATION
  Report Type: Spontaneous
  Country: IL (occurrence: IL)
  Receive Date: 20240708
  Receipt Date: 20250407
  Transmission Date: 20250717
  Serious: Yes (Other)
  Sender: NOVARTIS
  Company Number: IL-002147023-NVSC2024IL138216

PATIENT
  Age: 69 Year
  Sex: Male

DRUGS (4)
  1. SANDOSTATIN LAR DEPOT [Suspect]
     Active Substance: OCTREOTIDE ACETATE
     Indication: Acromegaly
     Dosage: UNK, Q4W (INTRAGLUTEAL)
     Route: 065
  2. SANDOSTATIN LAR DEPOT [Suspect]
     Active Substance: OCTREOTIDE ACETATE
  3. SANDOSTATIN LAR DEPOT [Suspect]
     Active Substance: OCTREOTIDE ACETATE
  4. CABERGOLINE [Suspect]
     Active Substance: CABERGOLINE
     Indication: Product used for unknown indication
     Route: 065

REACTIONS (16)
  - Nephrolithiasis [Unknown]
  - Haematochezia [Unknown]
  - Blood growth hormone increased [Unknown]
  - Skin lesion [Unknown]
  - Skin discolouration [Unknown]
  - Mood altered [Unknown]
  - Feeling abnormal [Unknown]
  - Decreased appetite [Unknown]
  - Injection site pain [Unknown]
  - Fatigue [Unknown]
  - Depressed mood [Unknown]
  - Sleep disorder [Unknown]
  - Drug ineffective [Unknown]
  - Dry skin [Unknown]
  - Vascular rupture [Unknown]
  - Skin discolouration [Unknown]
